FAERS Safety Report 6264933-6 (Version None)
Quarter: 2009Q3

REPORT INFORMATION
  Report Type: 
  Country: None (occurrence: None)
  Receive Date: 20090708
  Receipt Date: 20090708
  Transmission Date: 20100115
  Serious: Yes (Death)
  Sender: FDA-Public Use
  Company Number: None

PATIENT
  Age: 52 Year
  Sex: Male
  Weight: 72.5755 kg

DRUGS (2)
  1. CLONAZEPAM [Suspect]
     Dosage: 120 2 A DAY 2 AT NIGHT 93/833
     Dates: start: 20040501, end: 20090519
  2. MIRTAZAPINE [Suspect]
     Dosage: 30 1 AT NIGHT 545
     Dates: end: 20050515

REACTIONS (4)
  - COMPLETED SUICIDE [None]
  - DEPRESSION [None]
  - INCORRECT DOSE ADMINISTERED [None]
  - SUICIDAL IDEATION [None]
